FAERS Safety Report 6386676-0 (Version None)
Quarter: 2009Q4

REPORT INFORMATION
  Report Type: 
  Country: None (occurrence: None)
  Receive Date: 20091002
  Receipt Date: 20090928
  Transmission Date: 20100525
  Serious: Yes (Other)
  Sender: FDA-Public Use
  Company Number: CA-MERCK-0908CAN00083

PATIENT
  Sex: Male

DRUGS (7)
  1. JANUVIA [Suspect]
     Indication: TYPE 2 DIABETES MELLITUS
     Route: 048
     Dates: start: 20090716, end: 20090820
  2. ROSUVASTATIN CALCIUM [Concomitant]
     Route: 065
  3. ZETIA [Concomitant]
     Route: 048
  4. ASPIRIN [Concomitant]
     Route: 065
  5. VALSARTAN [Concomitant]
     Route: 065
  6. GLYBURIDE [Concomitant]
     Indication: TYPE 2 DIABETES MELLITUS
     Route: 065
     Dates: end: 20090716
  7. METFORMIN [Concomitant]
     Route: 048

REACTIONS (2)
  - AGGRESSION [None]
  - PHYSICAL ASSAULT [None]
